FAERS Safety Report 4441830-X (Version None)
Quarter: 2004Q3

REPORT INFORMATION
  Report Type: 
  Country: None (occurrence: None)
  Receive Date: 20040907
  Receipt Date: 20040825
  Transmission Date: 20050211
  Serious: Yes (Death)
  Sender: FDA-Public Use
  Company Number: 2004-08-1355

PATIENT
  Age: 29 Year
  Sex: Male
  Weight: 80 kg

DRUGS (3)
  1. INTRON A [Suspect]
     Indication: MALIGNANT MELANOMA
     Dosage: 20 MIU/M^2 QD INTRAVENOUS
     Route: 042
     Dates: start: 20030310, end: 20030321
  2. PARACETAMOL [Suspect]
  3. IBUPROFEN [Suspect]

REACTIONS (4)
  - HEPATIC FAILURE [None]
  - HEPATIC NECROSIS [None]
  - HEPATOTOXICITY [None]
  - SELF-MEDICATION [None]
